FAERS Safety Report 12722752 (Version 1)
Quarter: 2016Q3

REPORT INFORMATION
  Report Type: Report from Study
  Country: US (occurrence: US)
  Receive Date: 20160907
  Receipt Date: 20160907
  Transmission Date: 20161109
  Serious: Yes (Death, Other)
  Sender: FDA-Public Use
  Company Number: US-ROCHE-1827218

PATIENT
  Age: 15 Year
  Sex: Male
  Weight: 47.7 kg

DRUGS (2)
  1. BEVACIZUMAB [Suspect]
     Active Substance: BEVACIZUMAB
     Dosage: COURSE 3
     Route: 065
     Dates: start: 20120906, end: 20120910
  2. BEVACIZUMAB [Suspect]
     Active Substance: BEVACIZUMAB
     Indication: MEDULLOBLASTOMA
     Dosage: COURSE 1
     Route: 065
     Dates: start: 20120517

REACTIONS (10)
  - Death [Fatal]
  - Ataxia [Unknown]
  - White blood cell count decreased [Unknown]
  - Abdominal pain [Unknown]
  - Facial nerve disorder [Unknown]
  - Pyrexia [Unknown]
  - Hypotension [Unknown]
  - Hypercalcaemia [Unknown]
  - Hypoalbuminaemia [Unknown]
  - Neutrophil count decreased [Unknown]
